FAERS Safety Report 6816826-0 (Version None)
Quarter: 2010Q3

REPORT INFORMATION
  Report Type: 
  Country: None (occurrence: None)
  Receive Date: 20100706
  Receipt Date: 20100625
  Transmission Date: 20110219
  Serious: Yes (Other)
  Sender: FDA-Public Use
  Company Number: JP-JNJFOC-20100606040

PATIENT
  Sex: Male

DRUGS (6)
  1. CRAVIT [Suspect]
     Indication: DIVERTICULITIS
     Route: 048
  2. BIOFERMIN R [Concomitant]
     Indication: DIVERTICULITIS
     Dosage: 6 DF
     Route: 048
  3. LIMAPROST [Concomitant]
     Indication: OSTEOARTHRITIS
     Route: 048
  4. LOXONIN [Concomitant]
     Indication: OSTEOARTHRITIS
     Route: 048
  5. CHLORPHENESIN CARBAMATE BULK-EXPORT [Concomitant]
     Indication: OSTEOARTHRITIS
     Route: 048
  6. REBAMIPIDE [Concomitant]
     Indication: OSTEOARTHRITIS
     Route: 048

REACTIONS (7)
  - ANAPHYLACTOID REACTION [None]
  - BLOOD PRESSURE INCREASED [None]
  - BURNING SENSATION [None]
  - FLUSHING [None]
  - HEART RATE INCREASED [None]
  - NAUSEA [None]
  - PALPITATIONS [None]
